FAERS Safety Report 8849500 (Version 1)
Quarter: 2012Q4

REPORT INFORMATION
  Report Type: 
  Country: AU (occurrence: AU)
  Receive Date: 20121019
  Receipt Date: 20121019
  Transmission Date: 20130627
  Serious: Yes (Other)
  Sender: FDA-Public Use
  Company Number: PHHY2012AU090446

PATIENT
  Age: 60 Year
  Sex: Female

DRUGS (2)
  1. VALPROATE SODIUM [Suspect]
     Dosage: 1 g, BID
     Route: 048
  2. ASPIRIN [Concomitant]

REACTIONS (3)
  - Syncope [Unknown]
  - Oedema peripheral [Unknown]
  - Oedema peripheral [None]
